FAERS Safety Report 17435071 (Version 1)
Quarter: 2020Q1

REPORT INFORMATION
  Report Type: Report from Study
  Country: SE (occurrence: SE)
  Receive Date: 20200219
  Receipt Date: 20200219
  Transmission Date: 20200409
  Serious: Yes (Other)
  Sender: FDA-Public Use
  Company Number: SE-PFIZER INC-2020057854

PATIENT

DRUGS (4)
  1. DOXORUBICIN [Concomitant]
     Active Substance: DOXORUBICIN
     Dosage: 40 MG/M2
  2. VINCRISTINE [Concomitant]
     Active Substance: VINCRISTINE
     Dosage: 2.0 MG/M2, SIX TIMES
  3. METHOTREXATE SODIUM. [Suspect]
     Active Substance: METHOTREXATE SODIUM
     Dosage: FOUR TIMES (DAYS 1, 8, 15 AND 29)
     Route: 037
  4. PREDNISOLONE. [Concomitant]
     Active Substance: PREDNISOLONE
     Dosage: 60 MG/M2 ON DAYS 1-36, THEN TAPERED

REACTIONS (1)
  - Cerebrovascular accident [Unknown]
